FAERS Safety Report 9543030 (Version 1)
Quarter: 2013Q3

REPORT INFORMATION
  Report Type: Spontaneous
  Country: NL (occurrence: NL)
  Receive Date: 20130923
  Receipt Date: 20130923
  Transmission Date: 20140515
  Serious: Yes (Hospitalization)
  Sender: FDA-Public Use
  Company Number: PHHY2013NL103107

PATIENT
  Age: 34 Month
  Sex: Male
  Weight: 12.4 kg

DRUGS (9)
  1. CICLOSPORIN [Suspect]
     Indication: PROPHYLAXIS AGAINST GRAFT VERSUS HOST DISEASE
     Dosage: 80 MG, BID
  2. CICLOSPORIN [Interacting]
     Dosage: 60 MG, BID
  3. CICLOSPORIN [Interacting]
     Dosage: 50 MG, BID
  4. CICLOSPORIN [Interacting]
     Dosage: 70 MG, BID
  5. RIFAMPICIN [Interacting]
     Dosage: 120 MG, BID
  6. VALACICLOVIR [Concomitant]
  7. COTRIMOXAZOLE [Concomitant]
  8. ONDANSETRON [Concomitant]
  9. VANCOMYCIN [Concomitant]
     Indication: DEVICE RELATED INFECTION
     Dosage: 180 MG, QID

REACTIONS (3)
  - Immunosuppressant drug level decreased [Recovered/Resolved]
  - Immunosuppressant drug level increased [Recovered/Resolved]
  - Drug interaction [Unknown]
